FAERS Safety Report 8837828 (Version 2)
Quarter: 2013Q2

REPORT INFORMATION
  Report Type: Spontaneous
  Country: US (occurrence: US)
  Receive Date: 20121012
  Receipt Date: 20130408
  Transmission Date: 20140414
  Serious: Yes (Death)
  Sender: FDA-Public Use
  Company Number: US-ROCHE-1129016

PATIENT
  Sex: Male

DRUGS (4)
  1. NUTROPIN [Suspect]
     Indication: BODY HEIGHT BELOW NORMAL
     Route: 058
     Dates: start: 200709
  2. NUTROPIN [Suspect]
     Indication: FAILURE TO THRIVE
  3. NUTROPIN [Suspect]
     Indication: GROWTH RETARDATION
  4. NUTROPIN [Suspect]
     Indication: CYSTIC FIBROSIS

REACTIONS (1)
  - Respiratory failure [Fatal]
